FAERS Safety Report 11145315 (Version 1)
Quarter: 2015Q2

REPORT INFORMATION
  Report Type: Spontaneous
  Country: US (occurrence: US)
  Receive Date: 20150528
  Receipt Date: 20150528
  Transmission Date: 20150821
  Serious: No
  Sender: FDA-Public Use
  Company Number: US-TARO-2014TAR00191

PATIENT
  Sex: Male

DRUGS (1)
  1. AMMONIUM LACTATE CREAM (BASE) 12% [Suspect]
     Active Substance: AMMONIUM LACTATE
     Dosage: UNK, ONCE
     Route: 002
     Dates: start: 20140728

REACTIONS (2)
  - Chest pain [Not Recovered/Not Resolved]
  - Incorrect route of drug administration [Unknown]

NARRATIVE: CASE EVENT DATE: 201407
